FAERS Safety Report 20194804 (Version 1)
Quarter: 2021Q4

REPORT INFORMATION
  Report Type: Spontaneous
  Country: US (occurrence: None)
  Receive Date: 20211215
  Receipt Date: 20211215
  Transmission Date: 20220303
  Serious: No
  Sender: FDA-Public Use
  Company Number: None

PATIENT
  Age: 62 Year
  Sex: Female

DRUGS (5)
  1. SYNTHROID [Suspect]
     Active Substance: LEVOTHYROXINE SODIUM
     Indication: Post procedural hypothyroidism
  2. SYNTHROID [Suspect]
     Active Substance: LEVOTHYROXINE SODIUM
     Indication: Hypertension
  3. METHIMAZOLE [Suspect]
     Active Substance: METHIMAZOLE
  4. ELIQUIS [Suspect]
     Active Substance: APIXABAN
  5. DIGOXIN [Suspect]
     Active Substance: DIGOXIN

REACTIONS (6)
  - Palpitations [None]
  - Atrial fibrillation [None]
  - Hyperthyroidism [None]
  - Incorrect dose administered [None]
  - Blood thyroid stimulating hormone decreased [None]
  - Thyroxine free increased [None]
